FAERS Safety Report 16432775 (Version 2)
Quarter: 2019Q3

REPORT INFORMATION
  Report Type: Spontaneous
  Country: US (occurrence: US)
  Receive Date: 20190614
  Receipt Date: 20190718
  Transmission Date: 20191004
  Serious: No
  Sender: FDA-Public Use
  Company Number: US-TARO-2018TAR00672

PATIENT
  Age: 69 Year
  Sex: Female
  Weight: 58.96 kg

DRUGS (6)
  1. ATORVASTATIN [Concomitant]
     Active Substance: ATORVASTATIN
  2. ^IMPERIUM^ [Concomitant]
  3. SYNTHROID [Concomitant]
     Active Substance: LEVOTHYROXINE SODIUM
  4. CALCIUM [Concomitant]
     Active Substance: CALCIUM
  5. FLUOCINONIDE CREAM USP 0.05%. [Suspect]
     Active Substance: FLUOCINONIDE
     Indication: PSORIASIS
     Dosage: 1/2 A ^DIME SIZE^ ON EACH ELBOW, 1X/DAY AT NIGHT
     Route: 061
     Dates: start: 201808, end: 201809
  6. CLARITIN [Concomitant]
     Active Substance: LORATADINE

REACTIONS (5)
  - Drug ineffective [Recovered/Resolved]
  - Inappropriate schedule of product administration [Recovered/Resolved]
  - Psoriasis [Not Recovered/Not Resolved]
  - Product dispensing error [Recovered/Resolved]
  - Skin fissures [Not Recovered/Not Resolved]

NARRATIVE: CASE EVENT DATE: 201808
